FAERS Safety Report 5063636-3 (Version None)
Quarter: 2006Q3

REPORT INFORMATION
  Report Type: 
  Country: None (occurrence: None)
  Receive Date: 20060724
  Receipt Date: 20060717
  Transmission Date: 20061208
  Serious: Yes (Death)
  Sender: FDA-Public Use
  Company Number: 2006-143968-NL

PATIENT
  Age: 39 Year
  Sex: Female

DRUGS (2)
  1. MARVELON [Suspect]
     Indication: POLYCYSTIC OVARIES
     Dosage: DF ORAL
     Route: 048
     Dates: start: 19920701
  2. LEVOTHYROXINE SODIUM [Concomitant]

REACTIONS (9)
  - CARDIOMEGALY [None]
  - HAEMOGLOBIN ABNORMAL [None]
  - PULMONARY EMBOLISM [None]
  - PULMONARY OEDEMA [None]
  - RESPIRATORY ARREST [None]
  - SYNCOPE [None]
  - UPPER RESPIRATORY TRACT INFECTION [None]
  - VENOUS THROMBOSIS LIMB [None]
  - VERTIGO [None]
